FAERS Safety Report 6396253-3 (Version None)
Quarter: 2009Q4

REPORT INFORMATION
  Report Type: 
  Country: None (occurrence: None)
  Receive Date: 20091012
  Receipt Date: 20090929
  Transmission Date: 20100525
  Serious: Yes (Other)
  Sender: FDA-Public Use
  Company Number: CH-BIOGENIDEC-2009BI032001

PATIENT
  Age: 24 Year

DRUGS (1)
  1. TYSABRI [Suspect]
     Indication: MULTIPLE SCLEROSIS

REACTIONS (3)
  - HIP ARTHROPLASTY [None]
  - STAPHYLOCOCCAL ABSCESS [None]
  - STREPTOCOCCAL ABSCESS [None]
